FAERS Safety Report 7385896-6 (Version None)
Quarter: 2011Q1

REPORT INFORMATION
  Report Type: 
  Country: None (occurrence: None)
  Receive Date: 20110331
  Receipt Date: 20110328
  Transmission Date: 20110831
  Serious: No
  Sender: FDA-Public Use
  Company Number: US-PFIZER INC-2011069659

PATIENT
  Sex: Male

DRUGS (2)
  1. ZOLOFT [Suspect]
     Dosage: UNK
  2. LEXAPRO [Suspect]
     Dosage: UNK

REACTIONS (5)
  - DRY MOUTH [None]
  - MALAISE [None]
  - DECREASED APPETITE [None]
  - LOSS OF LIBIDO [None]
  - DRUG INEFFECTIVE [None]
